FAERS Safety Report 18544604 (Version 1)
Quarter: 2020Q4

REPORT INFORMATION
  Report Type: Spontaneous
  Country: US (occurrence: US)
  Receive Date: 20201125
  Receipt Date: 20201125
  Transmission Date: 20210114
  Serious: Yes (Hospitalization)
  Sender: FDA-Public Use
  Company Number: US-SUN PHARMACEUTICAL INDUSTRIES LTD-2020R1-268813

PATIENT
  Age: 54 Year
  Sex: Male

DRUGS (2)
  1. METHADONE [Suspect]
     Active Substance: METHADONE HYDROCHLORIDE
     Dosage: 65 MILLIGRAM, DAILY 30MG IN MORNING + 35MG BEDTIME)
     Route: 065
  2. METHADONE [Suspect]
     Active Substance: METHADONE HYDROCHLORIDE
     Indication: BACK PAIN
     Dosage: 65 MILLIGRAM, DAILY ((50MG IN MORNING AND 15MG AT BEDTIME)
     Route: 065

REACTIONS (1)
  - Hypoglycaemia [Recovered/Resolved]
